FAERS Safety Report 21258591 (Version 6)
Quarter: 2022Q4

REPORT INFORMATION
  Report Type: Spontaneous
  Country: US (occurrence: US)
  Receive Date: 20220826
  Receipt Date: 20221121
  Transmission Date: 20230113
  Serious: No
  Sender: FDA-Public Use
  Company Number: US-PFIZER INC-PV202200050154

PATIENT
  Age: 55 Year
  Sex: Female

DRUGS (1)
  1. IBRANCE [Suspect]
     Active Substance: PALBOCICLIB
     Dosage: 125 MG

REACTIONS (11)
  - Nausea [Recovering/Resolving]
  - Skin laceration [Not Recovered/Not Resolved]
  - Impaired healing [Not Recovered/Not Resolved]
  - Vomiting [Recovering/Resolving]
  - Alopecia [Not Recovered/Not Resolved]
  - Nail growth abnormal [Unknown]
  - Pruritus [Unknown]
  - Fatigue [Not Recovered/Not Resolved]
  - Neoplasm progression [Unknown]
  - Anxiety [Unknown]
  - Product dose omission issue [Unknown]
